FAERS Safety Report 8875320 (Version 2)
Quarter: 2015Q3

REPORT INFORMATION
  Report Type: Report from Study
  Country: US (occurrence: US)
  Receive Date: 20121023
  Receipt Date: 20150828
  Transmission Date: 20151125
  Serious: Yes (Death)
  Sender: FDA-Public Use
  Company Number: US-ROCHE-1133199

PATIENT
  Sex: Male

DRUGS (2)
  1. RAPTIVA [Suspect]
     Active Substance: EFALIZUMAB
     Indication: PSORIASIS
     Dosage: CONDITIONING DOSE
     Route: 065
  2. RAPTIVA [Suspect]
     Active Substance: EFALIZUMAB
     Indication: PUSTULAR PSORIASIS
     Route: 065
     Dates: start: 20060705

REACTIONS (1)
  - Death [Fatal]
